FAERS Safety Report 18277374 (Version 2)
Quarter: 2021Q3

REPORT INFORMATION
  Report Type: Other
  Country: SG (occurrence: SG)
  Receive Date: 20200917
  Receipt Date: 20210708
  Transmission Date: 20211014
  Serious: Yes (Death, Hospitalization, Other)
  Sender: FDA-Public Use
  Company Number: SG-ROCHE-2677085

PATIENT
  Age: 50 Year
  Sex: Female

DRUGS (2)
  1. HERCEPTIN [Suspect]
     Active Substance: TRASTUZUMAB
     Indication: BREAST CANCER METASTATIC
     Dosage: 2?3 TIMES A MONTH
     Route: 058
  2. KADCYLA [Suspect]
     Active Substance: ADO-TRASTUZUMAB EMTANSINE
     Indication: BREAST CANCER METASTATIC
     Route: 065

REACTIONS (14)
  - Ear haemorrhage [Unknown]
  - Hypoaesthesia [Unknown]
  - Eye disorder [Unknown]
  - Influenza [Unknown]
  - Malaise [Unknown]
  - Swelling [Recovered/Resolved]
  - Asthenia [Recovered/Resolved]
  - Cough [Unknown]
  - Muscular weakness [Unknown]
  - Deafness [Unknown]
  - Death [Fatal]
  - Cerebrovascular accident [Recovered/Resolved]
  - Vomiting [Unknown]
  - Seizure [Unknown]

NARRATIVE: CASE EVENT DATE: 20210107
